FAERS Safety Report 7365576-3 (Version None)
Quarter: 2011Q1

REPORT INFORMATION
  Report Type: 
  Country: None (occurrence: None)
  Receive Date: 20110322
  Receipt Date: 20110314
  Transmission Date: 20110831
  Serious: Yes (Hospitalization, Other)
  Sender: FDA-Public Use
  Company Number: US-TEVA-271462USA

PATIENT
  Age: 41 Year
  Sex: Male

DRUGS (2)
  1. LEVETIRACETAM TABLETS, 250 MG, 500 MG, 750 MG AND 1000 MG [Suspect]
     Indication: CONVULSION
  2. LEVETIRACETAM TABLETS, 250 MG, 500 MG, 750 MG AND 1000 MG [Suspect]
     Indication: BIPOLAR DISORDER
     Route: 048

REACTIONS (5)
  - OVERDOSE [None]
  - LEUKOPENIA [None]
  - THROMBOCYTOPENIA [None]
  - ATAXIA [None]
  - VISION BLURRED [None]
